FAERS Safety Report 12141955 (Version 1)
Quarter: 2016Q1

REPORT INFORMATION
  Report Type: Spontaneous
  Country: US (occurrence: US)
  Receive Date: 20160303
  Receipt Date: 20160303
  Transmission Date: 20160526
  Serious: Yes (Other)
  Sender: FDA-Public Use
  Company Number: US-ASTRAZENECA-2016SE21652

PATIENT
  Age: 28693 Day
  Sex: Female
  Weight: 49.4 kg

DRUGS (31)
  1. XANAX [Suspect]
     Active Substance: ALPRAZOLAM
     Route: 065
  2. IBUPROFEN. [Concomitant]
     Active Substance: IBUPROFEN
     Route: 048
  3. POTASSIUM CHLORIDE. [Concomitant]
     Active Substance: POTASSIUM CHLORIDE
     Route: 048
  4. ZOFRAN ODT [Concomitant]
     Active Substance: ONDANSETRON HYDROCHLORIDE
  5. LETROZOLE. [Concomitant]
     Active Substance: LETROZOLE
     Route: 048
  6. PROMETHAZINE [Concomitant]
     Active Substance: PROMETHAZINE\PROMETHAZINE HYDROCHLORIDE
     Route: 048
  7. METOPROLOL TARTRATE. [Concomitant]
     Active Substance: METOPROLOL TARTRATE
     Route: 048
  8. CALCIUM+VITAMIN D [Concomitant]
     Active Substance: CALCIUM\VITAMIN D
     Route: 048
  9. XGEVA [Concomitant]
     Active Substance: DENOSUMAB
     Route: 058
  10. FERROUS SULFATE [Concomitant]
     Active Substance: FERROUS SULFATE\FERROUS SULFATE, DRIED
  11. VOLTAREN [Concomitant]
     Active Substance: DICLOFENAC SODIUM
  12. MS CONTIN [Concomitant]
     Active Substance: MORPHINE SULFATE
     Route: 048
  13. PREVACID [Concomitant]
     Active Substance: LANSOPRAZOLE
     Route: 048
  14. EVEROLIMUS [Concomitant]
     Active Substance: EVEROLIMUS
  15. MIRALAX [Concomitant]
     Active Substance: POLYETHYLENE GLYCOL 3350
  16. LETROZOLE. [Concomitant]
     Active Substance: LETROZOLE
     Route: 048
     Dates: start: 20160129
  17. DEXAMETHASONE. [Concomitant]
     Active Substance: DEXAMETHASONE
     Route: 048
     Dates: start: 20160125
  18. KLOR-CON M10 [Concomitant]
     Active Substance: POTASSIUM CHLORIDE
     Route: 048
     Dates: start: 20141212
  19. LISINOPRIL. [Concomitant]
     Active Substance: LISINOPRIL
     Route: 048
  20. LIPITOR [Suspect]
     Active Substance: ATORVASTATIN CALCIUM
     Route: 065
  21. EXEMESTANE. [Concomitant]
     Active Substance: EXEMESTANE
     Route: 048
     Dates: start: 20141208
  22. FASLODEX [Suspect]
     Active Substance: FULVESTRANT
     Route: 030
  23. SENNA [Concomitant]
     Active Substance: SENNA LEAF\SENNOSIDES\SENNOSIDES A AND B
     Route: 048
  24. MORPHINE [Concomitant]
     Active Substance: MORPHINE
  25. DENOSUMAB [Concomitant]
     Active Substance: DENOSUMAB
     Route: 058
  26. IBRANCE [Suspect]
     Active Substance: PALBOCICLIB
     Dosage: 125 MG, DAILY FOR 21 DAYS AND THEN 7 DAYS OFF
     Route: 065
     Dates: start: 201601
  27. ERGOCALCIFEROL. [Concomitant]
     Active Substance: ERGOCALCIFEROL
     Dosage: 50000 UNITS TAKEN TUESDAY AND SATURDAY
     Route: 048
  28. OSTEO BI-FLEX [Concomitant]
     Active Substance: CHONDROITIN SULFATE A\GLUCOSAMINE
     Route: 048
  29. GINGER ROOT [Concomitant]
     Active Substance: GINGER
     Route: 048
  30. LETROZOLE. [Concomitant]
     Active Substance: LETROZOLE
     Route: 048
     Dates: start: 20160201
  31. KLOR-CON M10 [Concomitant]
     Active Substance: POTASSIUM CHLORIDE
     Dosage: GENERIC  1 DF, THREE TIMES A DAY
     Route: 048
     Dates: start: 20140922

REACTIONS (9)
  - Malignant neoplasm progression [Unknown]
  - Feeling abnormal [Unknown]
  - Musculoskeletal pain [Unknown]
  - Groin pain [Unknown]
  - Pain in extremity [Unknown]
  - Asthenia [Unknown]
  - Constipation [Unknown]
  - Blood glucose increased [Unknown]
  - Hot flush [Unknown]

NARRATIVE: CASE EVENT DATE: 20160218
